FAERS Safety Report 4658549-2 (Version None)
Quarter: 2005Q2

REPORT INFORMATION
  Report Type: 
  Country: None (occurrence: None)
  Receive Date: 20050509
  Receipt Date: 20050429
  Transmission Date: 20051028
  Serious: Yes (Disabling, Other)
  Sender: FDA-Public Use
  Company Number: 2005068406

PATIENT
  Age: 55 Year
  Sex: Male
  Weight: 88.4514 kg

DRUGS (14)
  1. CELEBREX [Suspect]
     Indication: ARTHRITIS
     Dosage: 100 MG (100 MG, 1 IN 1 D), ORAL
     Route: 048
  2. NAPROXEN [Concomitant]
  3. MIDODRINE HYDROCHLORIDE (MIDODRINE HYDROCHLORIDE) [Concomitant]
  4. HYDROCHLOROTHIAZIDE [Concomitant]
  5. FOLIC ACID [Concomitant]
  6. ATORVASTATIN CALCIUM [Concomitant]
  7. VENLAFAXINE HCL [Concomitant]
  8. OXYCODONE HCL [Concomitant]
  9. ASPIRIN [Concomitant]
  10. FLUOXETINE HCL [Concomitant]
  11. ESOMEPRAZOLE (ESOMEPRAZOLE) [Concomitant]
  12. DOCUSATE SODIUM (DOCUSATE SODIUM) [Concomitant]
  13. SILDENAFIL CITRATE (SILDENAFIL CITRATE) [Concomitant]
  14. TRAZODONE HCL [Concomitant]

REACTIONS (2)
  - NEOPLASM MALIGNANT [None]
  - PARALYSIS [None]
